FAERS Safety Report 9388940 (Version 3)
Quarter: 2014Q1

REPORT INFORMATION
  Report Type: Spontaneous
  Country: US (occurrence: US)
  Receive Date: 20130708
  Receipt Date: 20140128
  Transmission Date: 20141002
  Serious: Yes (Death, Hospitalization)
  Sender: FDA-Public Use
  Company Number: US-B.I. PHARMACEUTICALS,INC./RIDGEFIELD-2013-BI-19614BP

PATIENT
  Age: 39 Year
  Sex: Male
  Weight: 154.22 kg

DRUGS (9)
  1. PRADAXA [Suspect]
     Indication: ATRIAL FIBRILLATION
     Dosage: 300 MG
     Route: 048
     Dates: start: 20110415, end: 20110706
  2. KLOR-CON [Concomitant]
     Dates: start: 2009, end: 2011
  3. MULTAQ [Concomitant]
     Dates: start: 2009, end: 2011
  4. LISINOPRIL [Concomitant]
     Dates: start: 2009, end: 2011
  5. METOPROLOL [Concomitant]
     Dates: start: 2009, end: 2011
  6. FUROSEMIDE [Concomitant]
     Dates: start: 2009, end: 2011
  7. TOPROL [Concomitant]
     Dates: start: 2009, end: 2011
  8. ASPIRIN [Concomitant]
     Dates: start: 2009, end: 2011
  9. PLAVIX [Concomitant]
     Dates: start: 2009, end: 2011

REACTIONS (2)
  - Gastrointestinal haemorrhage [Fatal]
  - Myocardial infarction [Fatal]
